FAERS Safety Report 9399080 (Version 5)
Quarter: 2015Q1

REPORT INFORMATION
  Report Type: Spontaneous
  Country: JP (occurrence: JP)
  Receive Date: 20130715
  Receipt Date: 20150309
  Transmission Date: 20150721
  Serious: Yes (Hospitalization)
  Sender: FDA-Public Use
  Company Number: JP-ROCHE-1246052

PATIENT
  Age: 41 Year
  Sex: Female
  Weight: 45 kg

DRUGS (5)
  1. TYKERB [Concomitant]
     Active Substance: LAPATINIB DITOSYLATE
     Indication: BREAST CANCER
     Dosage: DOSAGE IS UNCERTAIN.
     Route: 048
     Dates: start: 201207
  2. XELODA [Interacting]
     Active Substance: CAPECITABINE
     Dosage: (3 WEEKS ON AND 1 WEEK OFF)
     Route: 065
  3. PHENYTOINE [Interacting]
     Active Substance: PHENYTOIN
     Indication: SEIZURE
     Dosage: LAST DOSE PRIOR TO ADVERSE EVENTS: 2012
     Route: 048
     Dates: start: 201204
  4. TYKERB [Concomitant]
     Active Substance: LAPATINIB DITOSYLATE
     Route: 065
  5. XELODA [Suspect]
     Active Substance: CAPECITABINE
     Indication: BREAST CANCER
     Route: 048
     Dates: start: 201207

REACTIONS (4)
  - Decreased appetite [Unknown]
  - Vomiting [Unknown]
  - Drug interaction [Unknown]
  - Toxicity to various agents [Recovered/Resolved]

NARRATIVE: CASE EVENT DATE: 201209
